FAERS Safety Report 8008995-4 (Version None)
Quarter: 2011Q4

REPORT INFORMATION
  Report Type: 
  Country: None (occurrence: None)
  Receive Date: 20111227
  Receipt Date: 20111221
  Transmission Date: 20120403
  Serious: No
  Sender: FDA-Public Use
  Company Number: US-PFIZER INC-2011310801

PATIENT
  Sex: Female
  Weight: 83.9 kg

DRUGS (1)
  1. ADVIL CONGESTION RELIEF [Suspect]
     Indication: NASOPHARYNGITIS
     Dosage: UNK, 1X/DAY
     Route: 048
     Dates: start: 20111209, end: 20111201

REACTIONS (1)
  - DRUG INEFFECTIVE [None]
